FAERS Safety Report 22527802 (Version 3)
Quarter: 2023Q4

REPORT INFORMATION
  Report Type: Report from Study
  Country: BR (occurrence: BR)
  Receive Date: 20230606
  Receipt Date: 20231115
  Transmission Date: 20240109
  Serious: Yes (Hospitalization, Other)
  Sender: FDA-Public Use
  Company Number: BR-002147023-NVSC2023BR127345

PATIENT
  Age: 75 Year
  Sex: Female

DRUGS (4)
  1. ENTRESTO [Suspect]
     Active Substance: SACUBITRIL\VALSARTAN
     Indication: Product used for unknown indication
     Dosage: 1 DOSAGE FORM (100 MG)
     Route: 065
  2. ENTRESTO [Suspect]
     Active Substance: SACUBITRIL\VALSARTAN
     Dosage: 1 DOSAGE FORM (100 MG)
     Route: 065
  3. ENTRESTO [Suspect]
     Active Substance: SACUBITRIL\VALSARTAN
     Dosage: 1 DOSAGE FORM, BID (100 MG)
     Route: 048
     Dates: start: 20230608
  4. DAPAGLIFLOZIN [Concomitant]
     Active Substance: DAPAGLIFLOZIN
     Indication: Product used for unknown indication
     Dosage: UNK
     Route: 065

REACTIONS (17)
  - Malaise [Unknown]
  - Blood pressure fluctuation [Unknown]
  - Syncope [Recovered/Resolved]
  - Cardiac failure [Unknown]
  - Rib fracture [Recovering/Resolving]
  - Pneumonia [Unknown]
  - Thrombosis [Unknown]
  - Accident [Recovered/Resolved]
  - Balance disorder [Unknown]
  - Accident at home [Recovering/Resolving]
  - Gait inability [Recovering/Resolving]
  - Pain in extremity [Recovering/Resolving]
  - Vein disorder [Unknown]
  - Peripheral swelling [Unknown]
  - Skin discolouration [Unknown]
  - Pain [Unknown]
  - Fatigue [Recovering/Resolving]

NARRATIVE: CASE EVENT DATE: 20230418
